FAERS Safety Report 16065702 (Version 2)
Quarter: 2019Q1

REPORT INFORMATION
  Report Type: Spontaneous
  Country: US (occurrence: US)
  Receive Date: 20190313
  Receipt Date: 20190329
  Transmission Date: 20190418
  Serious: Yes (Hospitalization, Other)
  Sender: FDA-Public Use
  Company Number: US-DRREDDYS-USA/USA/19/0108477

PATIENT
  Age: 16 Year
  Sex: Male

DRUGS (12)
  1. CLONIDINE. [Suspect]
     Active Substance: CLONIDINE
     Indication: ABNORMAL BEHAVIOUR
     Dosage: PER 5 DAYS, 0.1 MG IN MORNING AND 0.1 MG AT NIGHT
     Route: 062
  2. GUANFACINE. [Suspect]
     Active Substance: GUANFACINE
     Indication: ABNORMAL BEHAVIOUR
  3. CLONIDINE. [Suspect]
     Active Substance: CLONIDINE
     Route: 048
  4. RISPERIDONE. [Suspect]
     Active Substance: RISPERIDONE
     Route: 065
  5. TESTOSTERONE. [Concomitant]
     Active Substance: TESTOSTERONE
     Indication: PRADER-WILLI SYNDROME
     Dosage: EVERY OTHER WEEK
     Route: 030
  6. SOMATROPIN. [Concomitant]
     Active Substance: SOMATROPIN
     Indication: PRADER-WILLI SYNDROME
     Dosage: AT NIGHT
     Route: 058
  7. SERTRALINE [Suspect]
     Active Substance: SERTRALINE HYDROCHLORIDE
     Indication: PSYCHIATRIC DECOMPENSATION
     Route: 065
  8. SERTRALINE [Suspect]
     Active Substance: SERTRALINE HYDROCHLORIDE
     Dosage: GRADUALLY TITRATED
     Route: 065
  9. LITHIUM. [Suspect]
     Active Substance: LITHIUM
     Indication: AFFECTIVE DISORDER
     Route: 065
  10. SOMATROPIN. [Concomitant]
     Active Substance: SOMATROPIN
     Dosage: AT NIGHT
     Route: 058
  11. RISPERIDONE. [Suspect]
     Active Substance: RISPERIDONE
     Indication: PSYCHIATRIC DECOMPENSATION
     Route: 065
  12. SERTRALINE [Suspect]
     Active Substance: SERTRALINE HYDROCHLORIDE
     Dosage: GRADUALLY TITRATED
     Route: 065

REACTIONS (10)
  - Weight increased [Recovering/Resolving]
  - Nausea [Unknown]
  - Incorrect route of product administration [Unknown]
  - Condition aggravated [Recovering/Resolving]
  - Sedation [Unknown]
  - Bradycardia [Unknown]
  - Affective disorder [Recovering/Resolving]
  - Drug ineffective [Recovering/Resolving]
  - Dizziness [Unknown]
  - Increased appetite [Recovering/Resolving]
